FAERS Safety Report 8175192-1 (Version None)
Quarter: 2012Q1

REPORT INFORMATION
  Report Type: 
  Country: None (occurrence: None)
  Receive Date: 20120229
  Receipt Date: 20120223
  Transmission Date: 20120608
  Serious: Yes (Hospitalization, Other)
  Sender: FDA-Public Use
  Company Number: CO-PFIZER INC-CO-WYE-H17207410

PATIENT
  Age: 47 Year
  Sex: Female

DRUGS (3)
  1. EFFEXOR XR [Suspect]
     Indication: DEPRESSION
     Dosage: 75.0 MG, 1X/DAY
     Route: 048
     Dates: start: 20100701
  2. XANAX [Suspect]
     Indication: ANXIETY
     Dosage: 0.75 MG DAILY
     Route: 048
     Dates: start: 20100701
  3. XANAX [Suspect]
     Indication: INSOMNIA

REACTIONS (2)
  - INTERNATIONAL NORMALISED RATIO INCREASED [None]
  - DEEP VEIN THROMBOSIS [None]
